FAERS Safety Report 9261430 (Version 3)
Quarter: 2014Q2

REPORT INFORMATION
  Report Type: Spontaneous
  Country: US (occurrence: US)
  Receive Date: 20130429
  Receipt Date: 20140506
  Transmission Date: 20141212
  Serious: Yes (Hospitalization, Other)
  Sender: FDA-Public Use
  Company Number: US-009507513-1304USA013913

PATIENT
  Sex: Male
  Weight: 88.44 kg

DRUGS (1)
  1. PROPECIA [Suspect]
     Indication: ALOPECIA
     Dosage: 1 MG, UNK
     Route: 048
     Dates: start: 20081013, end: 201004

REACTIONS (28)
  - Mastectomy [Unknown]
  - Nipple pain [Unknown]
  - Hypogonadism [Unknown]
  - Oestradiol increased [Unknown]
  - Anxiety [Not Recovered/Not Resolved]
  - Irritability [Unknown]
  - Mental disorder [Unknown]
  - Benign prostatic hyperplasia [Unknown]
  - Glaucoma [Unknown]
  - Lower urinary tract symptoms [Unknown]
  - Gastrooesophageal reflux disease [Unknown]
  - Arrhythmia [Unknown]
  - Hyperlipidaemia [Unknown]
  - Haemorrhoids [Unknown]
  - Arthritis [Unknown]
  - Weight decreased [Unknown]
  - Urge incontinence [Unknown]
  - Eye pruritus [Unknown]
  - Fatigue [Unknown]
  - Weight increased [Unknown]
  - Eye pain [Unknown]
  - Eye operation [Unknown]
  - Depression [Not Recovered/Not Resolved]
  - Sexual dysfunction [Not Recovered/Not Resolved]
  - Gynaecomastia [Not Recovered/Not Resolved]
  - Erectile dysfunction [Not Recovered/Not Resolved]
  - Rash [Unknown]
  - Pruritus [Unknown]
